FAERS Safety Report 13302373 (Version 2)
Quarter: 2017Q1

REPORT INFORMATION
  Report Type: Spontaneous
  Country: KE (occurrence: KE)
  Receive Date: 20170307
  Receipt Date: 20170309
  Transmission Date: 20170428
  Serious: Yes (Other)
  Sender: FDA-Public Use
  Company Number: PHHY2017KE030327

PATIENT

DRUGS (1)
  1. MAXITROL [Suspect]
     Active Substance: DEXAMETHASONE\NEOMYCIN SULFATE\POLYMYXIN B SULFATE
     Indication: POSTOPERATIVE CARE
     Route: 047

REACTIONS (1)
  - Uveitis [Recovered/Resolved]
